FAERS Safety Report 4361249-X (Version None)
Quarter: 2004Q2

REPORT INFORMATION
  Report Type: 
  Country: None (occurrence: None)
  Receive Date: 20040520
  Receipt Date: 20031117
  Transmission Date: 20050107
  Serious: Yes (Other)
  Sender: FDA-Public Use
  Company Number: PHNU2003DE04063

PATIENT
  Sex: Female

DRUGS (5)
  1. CARBAMAZEPINE [Suspect]
     Indication: PAIN
     Dosage: 600MG/DAY
     Route: 048
     Dates: start: 20030201, end: 20030801
  2. DOXEPIN HCL [Suspect]
     Route: 065
  3. BROMAZANIL [Concomitant]
     Route: 065
  4. ZOPICLONE [Concomitant]
     Route: 065
  5. INSIDON [Suspect]
     Route: 065

REACTIONS (2)
  - OSTEOPOROSIS [None]
  - PAIN [None]
